FAERS Safety Report 23655587 (Version 1)
Quarter: 2024Q1

REPORT INFORMATION
  Report Type: Report from Study
  Country: NL (occurrence: NL)
  Receive Date: 20240321
  Receipt Date: 20240321
  Transmission Date: 20240410
  Serious: Yes (Death)
  Sender: FDA-Public Use
  Company Number: NL-ABBVIE-5619575

PATIENT
  Sex: Male

DRUGS (5)
  1. CARBIDOPA\LEVODOPA [Suspect]
     Active Substance: CARBIDOPA\LEVODOPA
     Indication: Parkinson^s disease
     Dosage: MD: 8.0ML, CD: 4.3ML/H, ED: 2.50ML, CND: 2.1ML/H, END: 1.00ML?DURATION TEXT: REMAINS AT 16 HOURS
     Route: 050
     Dates: start: 20240206
  2. CARBIDOPA\LEVODOPA [Suspect]
     Active Substance: CARBIDOPA\LEVODOPA
     Route: 050
     Dates: start: 20191128
  3. CARBIDOPA\LEVODOPA [Suspect]
     Active Substance: CARBIDOPA\LEVODOPA
     Dosage: MD: 8.0ML, CD: 4.3ML/H, ED: 2.50ML, CND: 2.1ML/H, END: 1.00ML?DURATION: REMAINS AT 24 HOURS
     Route: 050
     Dates: start: 20240118, end: 20240206
  4. MIRTAZAPINE [Concomitant]
     Active Substance: MIRTAZAPINE
     Indication: Insomnia
     Route: 048
     Dates: start: 20200217, end: 20200228
  5. LEVODOPA [Concomitant]
     Active Substance: LEVODOPA
     Indication: Parkinson^s disease

REACTIONS (3)
  - Death [Fatal]
  - Illness [Recovered/Resolved]
  - Device issue [Not Recovered/Not Resolved]
